FAERS Safety Report 14368767 (Version 2)
Quarter: 2018Q1

REPORT INFORMATION
  Report Type: Spontaneous
  Country: US (occurrence: US)
  Receive Date: 20180109
  Receipt Date: 20180110
  Transmission Date: 20180509
  Serious: No
  Sender: FDA-Public Use
  Company Number: US-PFIZER INC-2017553927

PATIENT
  Age: 10 Year
  Sex: Female
  Weight: 44 kg

DRUGS (4)
  1. WAKIX [Concomitant]
     Active Substance: PITOLISANT HYDROCHLORIDE
     Indication: SOMNOLENCE
     Dosage: 22.5 MG, 1X/DAY
     Route: 048
     Dates: start: 201702
  2. GENOTROPIN [Suspect]
     Active Substance: SOMATROPIN
     Indication: SOMNOLENCE
     Dosage: 1.2 MG, UNK
  3. WAKIX [Concomitant]
     Active Substance: PITOLISANT HYDROCHLORIDE
     Indication: PRADER-WILLI SYNDROME
  4. GENOTROPIN [Suspect]
     Active Substance: SOMATROPIN
     Indication: PRADER-WILLI SYNDROME
     Dosage: 1.2 MG, DAILY
     Dates: start: 20080731, end: 20171219

REACTIONS (2)
  - Influenza [Recovered/Resolved]
  - Malaise [Unknown]

NARRATIVE: CASE EVENT DATE: 20171217
